FAERS Safety Report 5761741-7 (Version None)
Quarter: 2008Q2

REPORT INFORMATION
  Report Type: 
  Country: None (occurrence: None)
  Receive Date: 20080606
  Receipt Date: 20080604
  Transmission Date: 20081010
  Serious: Yes (Death, Other)
  Sender: FDA-Public Use
  Company Number: MX-ABBOTT-08P-107-0455071-00

PATIENT

DRUGS (1)
  1. KALETRA [Suspect]
     Indication: DRUG USE FOR UNKNOWN INDICATION

REACTIONS (4)
  - GRAND MAL CONVULSION [None]
  - HEMIPARESIS [None]
  - HEMIPLEGIA [None]
  - TOXOPLASMOSIS [None]
